FAERS Safety Report 10487357 (Version 1)
Quarter: 2014Q4

REPORT INFORMATION
  Report Type: Spontaneous
  Country: US (occurrence: US)
  Receive Date: 20141001
  Receipt Date: 20141001
  Transmission Date: 20150528
  Serious: Yes (Other)
  Sender: FDA-Public Use
  Company Number: US-PFIZER INC-2014266372

PATIENT
  Age: 56 Year
  Sex: Male

DRUGS (25)
  1. LYRICA [Suspect]
     Active Substance: PREGABALIN
     Dosage: 50 MG, 1X/DAY  IN THE EVENING)
     Route: 048
  2. CLONIDINE. [Concomitant]
     Active Substance: CLONIDINE
     Dosage: 0.1 MG, (1 TAB 3 TIMES A DAY)
  3. VITAMIN B2 [Concomitant]
     Active Substance: RIBOFLAVIN
     Dosage: UNK, (MG TABLET 1 TAB(S) ONCE A DAY)
  4. VITAMIN B12 [Concomitant]
     Active Substance: CYANOCOBALAMIN
     Dosage: UNK, (MCG TABLET 1 TAB(S) ONCE A DAY)
  5. MUCINEX [Concomitant]
     Active Substance: GUAIFENESIN
     Dosage: 600 MG, (EXTENDED RELEASE 1 TAB EVERY 12 HOURS)
  6. ALLOPURINOL. [Concomitant]
     Active Substance: ALLOPURINOL
     Dosage: 100 MG, (1 TAB ONCE A DAY)
  7. BENADRYL [Concomitant]
     Active Substance: DIPHENHYDRAMINE HYDROCHLORIDE
     Dosage: 25 MG, (1 CAP QHS)
  8. TRAZODONE [Concomitant]
     Active Substance: TRAZODONE HYDROCHLORIDE
     Dosage: 50 MG, (1-2 TABS ONCE A DAY, AT BEDTIME)
  9. MAGNESIUM [Concomitant]
     Active Substance: MAGNESIUM
     Dosage: 400 MG, (1 TABLET BID)
  10. LACTULOSE. [Concomitant]
     Active Substance: LACTULOSE
     Dosage: UNK, (10G/15 ML SYRUP 30 ML TUE, THUR, SAT)
  11. ATIVAN [Concomitant]
     Active Substance: LORAZEPAM
     Dosage: 1 MG, (1 TAB 4-5 TIMES A DAY)
  12. VIAGRA [Suspect]
     Active Substance: SILDENAFIL CITRATE
     Dosage: 100 MG, AS NEEDED (100 MG TABLET 1/4 ONCE A DAY AS NEEDED)
     Route: 048
  13. FOLIC ACID. [Concomitant]
     Active Substance: FOLIC ACID
     Dosage: 1 MG, (1 TAB ONCE A DAY)
  14. TRIAMCINOLONE [Concomitant]
     Active Substance: TRIAMCINOLONE
     Dosage: UNK ( TOPICAL 0.1% CREAM 1 APP 3 TIMES A DAY ON HAND AVOID FACE AND FOLDS)
     Route: 061
  15. CLOBETASOL PROPIONATE. [Concomitant]
     Active Substance: CLOBETASOL PROPIONATE
     Dosage: UNK (0.05% CREAM 1 APP 2 TIMES A DAY)
  16. OMEPRAZOLE. [Concomitant]
     Active Substance: OMEPRAZOLE
     Dosage: 40 MG, (1 CAP ONCE A DAY)
  17. LISINOPRIL. [Concomitant]
     Active Substance: LISINOPRIL
     Indication: BLOOD PRESSURE
     Dosage: 5 MG, 1X/DAY (5 MG TABLET 1 TAB(S) ONCE A DAY:PRN)
  18. VITAMIN B6 [Concomitant]
     Active Substance: PYRIDOXINE HYDROCHLORIDE
     Dosage: UNK, (MG TABLET 1 TAB(S) ONCE A DAY)
  19. FISH OIL [Concomitant]
     Active Substance: FISH OIL
     Dosage: UNK, (MG CAPSULE A CAP(S) ONCE A DAY)
  20. MICONAZOLE NITRATE. [Concomitant]
     Active Substance: MICONAZOLE NITRATE
     Dosage: UNK (2% CREAM 1 APP 2 TIMES A DAY)
  21. IBUPROFEN. [Concomitant]
     Active Substance: IBUPROFEN
     Indication: PAIN
     Dosage: 800 MG, (1 TAB DAILY, PRN (AS NEEDED) )
  22. VIAGRA [Suspect]
     Active Substance: SILDENAFIL CITRATE
     Dosage: 100 MG, (1/2 1-3 PRIOR TO SEX)
     Route: 048
  23. SPIRONOLACTONE. [Concomitant]
     Active Substance: SPIRONOLACTONE
     Dosage: 25 MG, (1/2 TAB DAILY)
  24. VITAMIN B1 [Concomitant]
     Active Substance: THIAMINE HYDROCHLORIDE
     Dosage: UNK, (MG TABLET 1 TAB(S) ONCE A DAY)
  25. LEVOTHYROXINE SODIUM. [Concomitant]
     Active Substance: LEVOTHYROXINE SODIUM
     Dosage: 25 UG, (1 TAB ONCE A DAY)

REACTIONS (3)
  - Chest pain [Unknown]
  - Rash [Unknown]
  - Dyspnoea [Unknown]
